FAERS Safety Report 24110830 (Version 4)
Quarter: 2024Q3

REPORT INFORMATION
  Report Type: Report from Study
  Country: US (occurrence: US)
  Receive Date: 20240718
  Receipt Date: 20240810
  Transmission Date: 20241017
  Serious: Yes (Other)
  Sender: SANOFI AVENTIS
  Company Number: US-SA-SAC20240715000127

PATIENT
  Age: 74 Year
  Sex: Female

DRUGS (2)
  1. DUPILUMAB [Suspect]
     Active Substance: DUPILUMAB
     Indication: Dermatitis allergic
     Dosage: 600 MG, 1X
     Route: 058
  2. DUPILUMAB [Suspect]
     Active Substance: DUPILUMAB
     Dosage: 300 MG, QOW
     Route: 058

REACTIONS (7)
  - Pneumonia [Recovered/Resolved]
  - Cough [Not Recovered/Not Resolved]
  - Eczema [Recovering/Resolving]
  - Dermatitis [Recovering/Resolving]
  - Erythema [Recovering/Resolving]
  - Pruritus [Recovering/Resolving]
  - Drug ineffective [Recovering/Resolving]
